FAERS Safety Report 17728388 (Version 2)
Quarter: 2020Q3

REPORT INFORMATION
  Report Type: Report from Study
  Country: None (occurrence: US)
  Receive Date: 20200430
  Receipt Date: 20200805
  Transmission Date: 20201102
  Serious: Yes (Death, Hospitalization, Other)
  Sender: FDA-Public Use
  Company Number: US-ABBVIE-20K-163-3379658-00

PATIENT
  Age: 69 Year
  Sex: Male
  Weight: 133.93 kg

DRUGS (10)
  1. ATORVASTATIN [Concomitant]
     Active Substance: ATORVASTATIN
     Indication: PRODUCT USED FOR UNKNOWN INDICATION
  2. CLOPIDOGREL [Concomitant]
     Active Substance: CLOPIDOGREL BISULFATE
     Indication: PRODUCT USED FOR UNKNOWN INDICATION
  3. CARVEDILOL. [Concomitant]
     Active Substance: CARVEDILOL
     Indication: PRODUCT USED FOR UNKNOWN INDICATION
  4. PIOGLITAZONE. [Concomitant]
     Active Substance: PIOGLITAZONE
     Indication: PRODUCT USED FOR UNKNOWN INDICATION
  5. HUMIRA [Suspect]
     Active Substance: ADALIMUMAB
     Indication: PSORIASIS
     Route: 058
  6. RAMIPRIL. [Suspect]
     Active Substance: RAMIPRIL
     Indication: BLOOD PRESSURE MEASUREMENT
     Route: 065
  7. L LYSINE [LYSINE] [Concomitant]
     Indication: PRODUCT USED FOR UNKNOWN INDICATION
  8. VASCEPA [Concomitant]
     Active Substance: ICOSAPENT ETHYL
     Indication: PRODUCT USED FOR UNKNOWN INDICATION
  9. ISOSORBIDE MONONITRATE. [Concomitant]
     Active Substance: ISOSORBIDE MONONITRATE
     Indication: PRODUCT USED FOR UNKNOWN INDICATION
  10. LOSARTAN/HCTZ [Concomitant]
     Active Substance: HYDROCHLOROTHIAZIDE\LOSARTAN
     Indication: PRODUCT USED FOR UNKNOWN INDICATION

REACTIONS (28)
  - Decreased activity [Not Recovered/Not Resolved]
  - Weight decreased [Not Recovered/Not Resolved]
  - Delusion [Not Recovered/Not Resolved]
  - Hypoaesthesia [Unknown]
  - Gastrointestinal pain [Not Recovered/Not Resolved]
  - General symptom [Unknown]
  - Hallucination [Not Recovered/Not Resolved]
  - Lymphadenopathy [Unknown]
  - Paraesthesia [Unknown]
  - Fluid intake reduced [Unknown]
  - Hypophagia [Unknown]
  - Arthralgia [Not Recovered/Not Resolved]
  - Death [Fatal]
  - Gait inability [Unknown]
  - Memory impairment [Not Recovered/Not Resolved]
  - Decreased appetite [Unknown]
  - Depression [Not Recovered/Not Resolved]
  - Cerebrovascular accident [Unknown]
  - Malnutrition [Recovering/Resolving]
  - Headache [Unknown]
  - Blood pressure increased [Unknown]
  - Chest pain [Not Recovered/Not Resolved]
  - Back pain [Not Recovered/Not Resolved]
  - Chemical burn [Unknown]
  - Illusion [Not Recovered/Not Resolved]
  - Unevaluable event [Not Recovered/Not Resolved]
  - Diarrhoea [Not Recovered/Not Resolved]
  - Nausea [Unknown]

NARRATIVE: CASE EVENT DATE: 20200430
